FAERS Safety Report 11276358 (Version 1)
Quarter: 2015Q2

REPORT INFORMATION
  Report Type: Spontaneous
  Country: US (occurrence: None)
  Receive Date: 20150625
  Receipt Date: 20150625
  Transmission Date: 20150821
  Serious: No
  Sender: FDA-Public Use
  Company Number: A-NJ2015-115570

PATIENT
  Age: 70 Year
  Sex: Male

DRUGS (17)
  1. COLACE [Concomitant]
     Active Substance: DOCUSATE SODIUM
  2. MELATONIN [Concomitant]
     Active Substance: MELATONIN
  3. RIOCIGUAT [Concomitant]
     Active Substance: RIOCIGUAT
  4. PRAVASTATIN [Concomitant]
     Active Substance: PRAVASTATIN\PRAVASTATIN SODIUM
  5. ALPRAZOLAM. [Concomitant]
     Active Substance: ALPRAZOLAM
  6. OXYGEN. [Concomitant]
     Active Substance: OXYGEN
  7. PREDNISONE. [Concomitant]
     Active Substance: PREDNISONE
  8. TYLENOL [Concomitant]
     Active Substance: ACETAMINOPHEN
  9. OPSUMIT [Suspect]
     Active Substance: MACITENTAN
     Indication: PULMONARY ARTERIAL HYPERTENSION
     Route: 048
     Dates: start: 20150305
  10. LASIX [Concomitant]
     Active Substance: FUROSEMIDE
  11. ZYRTEC [Concomitant]
     Active Substance: CETIRIZINE HYDROCHLORIDE
  12. LEVEMIR [Concomitant]
     Active Substance: INSULIN DETEMIR
  13. BACTRIM [Concomitant]
     Active Substance: SULFAMETHOXAZOLE\TRIMETHOPRIM
  14. SERTRALINE [Concomitant]
     Active Substance: SERTRALINE HYDROCHLORIDE
  15. BUMEX (BUMETANIDE) [Concomitant]
  16. POTASSIUM [Concomitant]
     Active Substance: POTASSIUM
  17. HYDROCODONE [Concomitant]
     Active Substance: HYDROCODONE

REACTIONS (10)
  - Fatigue [None]
  - Pain in extremity [None]
  - Asthenopia [None]
  - Muscle spasms [None]
  - Headache [None]
  - Ear pain [None]
  - Dry skin [None]
  - Oropharyngeal pain [None]
  - Confusional state [None]
  - Laceration [None]

NARRATIVE: CASE EVENT DATE: 20150308
